FAERS Safety Report 9782660 (Version 2)
Quarter: 2014Q1

REPORT INFORMATION
  Report Type: Report from Study
  Country: JP (occurrence: JP)
  Receive Date: 20131226
  Receipt Date: 20140213
  Transmission Date: 20141002
  Serious: Yes (Death)
  Sender: FDA-Public Use
  Company Number: JP-PFIZER INC-2013364137

PATIENT
  Age: 64 Year
  Sex: Female
  Weight: 54 kg

DRUGS (11)
  1. XALKORI [Suspect]
     Indication: NON-SMALL CELL LUNG CANCER
     Dosage: 250 MG, 2X/DAY
     Route: 048
     Dates: start: 20120630
  2. MUCODYNE [Concomitant]
     Dosage: 500 MG, 3X/DAY
     Route: 048
     Dates: end: 20121014
  3. MUCOSOLVAN [Concomitant]
     Dosage: 15 MG, 3X/DAY
     Route: 048
     Dates: end: 20120930
  4. LASIX [Concomitant]
     Dosage: 20 MG, 1X/DAY
     Route: 048
     Dates: end: 20120930
  5. ROHYPNOL [Concomitant]
     Dosage: 1 MG, 1X/DAY
     Route: 048
  6. PREDONINE [Concomitant]
     Dosage: 15 MG, 1X/DAY
     Route: 048
  7. PRIMPERAN [Concomitant]
     Dosage: 5 MG, 3X/DAY
     Route: 048
  8. LOXONIN [Concomitant]
     Dosage: 60 MG, 3X/DAY
     Route: 048
  9. HUSTAZOL [Concomitant]
     Dosage: 20 MG, 3X/DAY
     Route: 048
     Dates: start: 20120924, end: 20121014
  10. NOVAMIN [Concomitant]
     Dosage: 5 MG, 3X/DAY
     Route: 048
     Dates: start: 20121112
  11. OXYCONTIN [Concomitant]
     Dosage: 5 MG, 2X/DAY
     Route: 048
     Dates: start: 20121112

REACTIONS (2)
  - Disease progression [Fatal]
  - Non-small cell lung cancer [Fatal]
